FAERS Safety Report 4387869-4 (Version None)
Quarter: 2004Q2

REPORT INFORMATION
  Report Type: 
  Country: None (occurrence: None)
  Receive Date: 20040630
  Receipt Date: 20040606
  Transmission Date: 20050107
  Serious: Yes (Hospitalization, Other)
  Sender: FDA-Public Use
  Company Number: PHBS2004DO07414

PATIENT
  Age: 19 Year
  Sex: Female

DRUGS (2)
  1. ZELMAC [Suspect]
     Dosage: 36 MG, ONCE/SINGLE
     Route: 048
  2. TRAMACET [Suspect]
     Dosage: 14 DF, ONCE/SINGLE
     Route: 048
     Dates: start: 20040606

REACTIONS (2)
  - MULTIPLE DRUG OVERDOSE INTENTIONAL [None]
  - SUICIDE ATTEMPT [None]
